FAERS Safety Report 6329996-8 (Version None)
Quarter: 2009Q3

REPORT INFORMATION
  Report Type: 
  Country: None (occurrence: None)
  Receive Date: 20090825
  Receipt Date: 20090818
  Transmission Date: 20100115
  Serious: Yes (Disabling)
  Sender: FDA-Public Use
  Company Number: 2009AL005448

PATIENT
  Age: 45 Year
  Sex: Female

DRUGS (1)
  1. FLUOXETINE ORAL SOLUTION USP, [Suspect]
     Indication: DEPRESSION
     Dosage: 40 MG;PO
     Route: 048
     Dates: start: 20080601

REACTIONS (1)
  - MENSTRUAL DISORDER [None]
